FAERS Safety Report 10270292 (Version 1)
Quarter: 2014Q2

REPORT INFORMATION
  Report Type: Spontaneous
  Country: AU (occurrence: None)
  Receive Date: 20140626
  Receipt Date: 20140626
  Transmission Date: 20141212
  Serious: Yes (Other)
  Sender: FDA-Public Use
  Company Number: AUR-APL-2014-06258

PATIENT
  Age: 68 Year
  Sex: Female

DRUGS (7)
  1. METFORMIN (METFORMIN) [Suspect]
     Indication: TYPE 2 DIABETES MELLITUS
  2. MELOXICAM (MELOXICAM) [Suspect]
     Indication: PRODUCT USED FOR UNKNOWN INDICATION
  3. IRBESARTAN (IRBESARTAN) [Suspect]
     Indication: HYPERTENSION
  4. INDAPAMIDE (INDAPAMIDE) [Suspect]
     Indication: PRODUCT USED FOR UNKNOWN INDICATION
  5. GLICLAZIDE (GLICLAZIDE) [Concomitant]
  6. ISOPHANE INSULIN (ISOPHANE INSULIN) [Concomitant]
  7. AMLODIPINE (AMLODIPINE) [Concomitant]

REACTIONS (5)
  - Renal failure acute [None]
  - Lactic acidosis [None]
  - Diarrhoea [None]
  - Dehydration [None]
  - Hypovolaemia [None]
